FAERS Safety Report 8446833-6 (Version None)
Quarter: 2012Q2

REPORT INFORMATION
  Report Type: 
  Country: None (occurrence: None)
  Receive Date: 20120619
  Receipt Date: 20120608
  Transmission Date: 20120825
  Serious: No
  Sender: FDA-Public Use
  Company Number: US-BIOGENIDEC-2012BI020576

PATIENT
  Age: 59 Year
  Sex: Female

DRUGS (2)
  1. AVONEX [Suspect]
     Indication: MULTIPLE SCLEROSIS
     Route: 030
     Dates: start: 20120522
  2. DIAMOX [Concomitant]
     Indication: REDUCTION OF INCREASED INTRACRANIAL PRESSURE
     Dates: start: 20080401

REACTIONS (4)
  - VERTIGO POSITIONAL [None]
  - HEADACHE [None]
  - INFLUENZA LIKE ILLNESS [None]
  - ABDOMINAL PAIN UPPER [None]
